FAERS Safety Report 9296207 (Version 1)
Quarter: 2013Q2

REPORT INFORMATION
  Report Type: Spontaneous
  Country: FR (occurrence: FR)
  Receive Date: 20130517
  Receipt Date: 20130517
  Transmission Date: 20140414
  Serious: Yes (Hospitalization, Other)
  Sender: FDA-Public Use
  Company Number: FR-BRISTOL-MYERS SQUIBB COMPANY-18889212

PATIENT
  Age: 91 Year
  Sex: Female

DRUGS (6)
  1. COUMADINE [Suspect]
     Indication: ATRIAL FIBRILLATION
     Dosage: 2MG TABLET
     Route: 048
     Dates: start: 20121223, end: 20121224
  2. TAREG [Concomitant]
     Dosage: TAREG 160?IN THE EVNG
  3. SOTALEX [Concomitant]
     Dosage: 1DF=HALF A TABLET IN THE MORNING
  4. LASILIX [Concomitant]
     Dosage: HALF A TABLET IN THE MORNING
  5. DISCOTRINE [Concomitant]
     Dosage: 1DF=PATCH 5 MG
  6. INEXIUM [Concomitant]
     Dosage: 1DF=1TAB IN THE EVNG

REACTIONS (4)
  - Rectal haemorrhage [Recovered/Resolved]
  - Diverticulum intestinal [Unknown]
  - Polyp [Unknown]
  - Large intestinal ulcer [Unknown]
